FAERS Safety Report 4775304-3 (Version None)
Quarter: 2005Q3

REPORT INFORMATION
  Report Type: 
  Country: None (occurrence: None)
  Receive Date: 20050914
  Receipt Date: 20050720
  Transmission Date: 20060218
  Serious: Yes (Hospitalization)
  Sender: FDA-Public Use
  Company Number: S05-USA-01861-01

PATIENT
  Age: 55 Year
  Sex: Male

DRUGS (4)
  1. LEXAPRO [Suspect]
     Indication: DEPRESSION
  2. LEXAPRO [Suspect]
     Indication: DEPRESSION
     Dates: end: 20050101
  3. ASPIRIN [Suspect]
     Indication: CEREBROVASCULAR ACCIDENT
  4. ALCOHOL (ALCOHOL) [Suspect]

REACTIONS (1)
  - GASTRIC HAEMORRHAGE [None]
